FAERS Safety Report 18704601 (Version 1)
Quarter: 2021Q1

REPORT INFORMATION
  Report Type: Spontaneous
  Country: US (occurrence: US)
  Receive Date: 20210105
  Receipt Date: 20210105
  Transmission Date: 20210419
  Serious: Yes (Hospitalization)
  Sender: FDA-Public Use
  Company Number: US-NEUROCRINE BIOSCIENCES INC.-2020NBI04790

PATIENT
  Age: 7 Decade
  Sex: Female

DRUGS (4)
  1. INGREZZA [Suspect]
     Active Substance: VALBENAZINE
     Indication: TARDIVE DYSKINESIA
     Route: 048
     Dates: start: 2020, end: 2020
  2. LOXAPINE. [Concomitant]
     Active Substance: LOXAPINE
     Dates: end: 202012
  3. CAPLYTA [Suspect]
     Active Substance: LUMATEPERONE
     Indication: PRODUCT USED FOR UNKNOWN INDICATION
     Dates: start: 202012
  4. INGREZZA [Suspect]
     Active Substance: VALBENAZINE
     Route: 048
     Dates: start: 2020

REACTIONS (3)
  - Catatonia [Recovered/Resolved]
  - Gait inability [Recovered/Resolved]
  - Urinary incontinence [Recovered/Resolved]

NARRATIVE: CASE EVENT DATE: 202012
